FAERS Safety Report 24662408 (Version 1)
Quarter: 2024Q4

REPORT INFORMATION
  Report Type: Spontaneous
  Country: PT (occurrence: PT)
  Receive Date: 20241125
  Receipt Date: 20241125
  Transmission Date: 20250115
  Serious: Yes (Disabling, Other)
  Sender: VIIV
  Company Number: None

PATIENT

DRUGS (3)
  1. TIVICAY [Suspect]
     Active Substance: DOLUTEGRAVIR SODIUM
     Indication: Prophylaxis against HIV infection
     Dosage: 50 MG, QD (1 TABLET DAILY, WITH FOOD)
     Route: 048
     Dates: start: 20241031, end: 20241104
  2. EMTRICITABINE\TENOFOVIR DISOPROXIL SUCCINATE [Suspect]
     Active Substance: EMTRICITABINE\TENOFOVIR DISOPROXIL SUCCINATE
     Indication: Prophylaxis against HIV infection
     Dosage: 1 DF, QD (1 TABLET DAILY, WITH FOOD) (STRENGTH 200 MG + 245 MG)
     Route: 048
     Dates: start: 20241031, end: 20241104
  3. Aranka [Concomitant]
     Indication: Product used for unknown indication
     Dosage: UNK (3 MG + 0.03 MG)
     Route: 048

REACTIONS (2)
  - Hallucinations, mixed [Recovered/Resolved]
  - Off label use [Recovered/Resolved]

NARRATIVE: CASE EVENT DATE: 20241101
